FAERS Safety Report 5569362-6 (Version None)
Quarter: 2007Q4

REPORT INFORMATION
  Report Type: 
  Country: None (occurrence: None)
  Receive Date: 20071220
  Receipt Date: 20071219
  Transmission Date: 20080405
  Serious: Yes (Death, Other)
  Sender: FDA-Public Use
  Company Number: JP-ELI_LILLY_AND_COMPANY-JP200712004062

PATIENT
  Age: 77 Year
  Sex: Male

DRUGS (3)
  1. GEMZAR [Suspect]
     Indication: BILE DUCT CANCER RECURRENT
     Dosage: 800 MG, OTHER
     Route: 042
  2. FLUOROURACIL [Concomitant]
     Indication: BILE DUCT CANCER RECURRENT
     Dosage: 500 MG, OTHER
     Route: 042
  3. THERAPEUTIC RADIOPHARMACEUTICALS [Concomitant]
     Indication: BILE DUCT CANCER RECURRENT

REACTIONS (4)
  - CARBOHYDRATE ANTIGEN 19-9 INCREASED [None]
  - GASTRODUODENAL HAEMORRHAGE [None]
  - NEUTROPENIA [None]
  - SHOCK HAEMORRHAGIC [None]
